FAERS Safety Report 7449574-7 (Version None)
Quarter: 2011Q2

REPORT INFORMATION
  Report Type: 
  Country: None (occurrence: None)
  Receive Date: 20110502
  Receipt Date: 20110411
  Transmission Date: 20111010
  Serious: Yes (Hospitalization)
  Sender: FDA-Public Use
  Company Number: US-BAYER-2011-034994

PATIENT
  Age: 20 Year
  Sex: Female
  Weight: 92 kg

DRUGS (9)
  1. NAPROXEN [Concomitant]
     Dosage: UNK
     Dates: start: 20080601
  2. YASMIN [Suspect]
     Dosage: UNK
     Dates: start: 20050105, end: 20050222
  3. FASTIN [Concomitant]
     Indication: WEIGHT DECREASED
     Dosage: 30 MG, QD
     Dates: start: 20040413
  4. SYNTHROID [Concomitant]
     Indication: HYPERTHYROIDISM
     Dosage: 100 ?G, QD
     Route: 048
  5. IBUPROFEN [Concomitant]
     Dosage: UNK
     Dates: start: 20050301
  6. LEXAPRO [Concomitant]
     Indication: DEPRESSION
     Dosage: 10 MG, QD
     Route: 048
  7. PHENTERMINE [Concomitant]
     Dosage: UNK
     Dates: start: 20040413, end: 20080302
  8. IBUPROFEN [Concomitant]
     Dosage: UNK
     Dates: start: 20080301
  9. IBUPROFEN [Concomitant]
     Dosage: UNK, PRN

REACTIONS (3)
  - DYSPNOEA [None]
  - PULMONARY EMBOLISM [None]
  - CHEST DISCOMFORT [None]
